FAERS Safety Report 15525972 (Version 1)
Quarter: 2018Q4

REPORT INFORMATION
  Report Type: Spontaneous
  Country: US (occurrence: US)
  Receive Date: 20181018
  Receipt Date: 20181018
  Transmission Date: 20190205
  Serious: No
  Sender: FDA-Public Use
  Company Number: US-TEVA-2018-US-963409

PATIENT
  Age: 40 Year
  Sex: Female

DRUGS (1)
  1. ATENOLOL TEVA [Suspect]
     Active Substance: ATENOLOL
     Route: 065

REACTIONS (2)
  - Hyperhidrosis [Unknown]
  - Palpitations [Unknown]

NARRATIVE: CASE EVENT DATE: 2017
